FAERS Safety Report 6854112-3 (Version None)
Quarter: 2010Q3

REPORT INFORMATION
  Report Type: 
  Country: None (occurrence: None)
  Receive Date: 20100717
  Receipt Date: 20080208
  Transmission Date: 20110219
  Serious: No
  Sender: FDA-Public Use
  Company Number: US-PFIZER INC-2007104112

PATIENT
  Sex: Female
  Weight: 50.454 kg

DRUGS (6)
  1. CHANTIX [Suspect]
     Indication: SMOKING CESSATION THERAPY
     Dates: start: 20071204
  2. OTHER HYPNOTICS AND SEDATIVES [Concomitant]
     Indication: SLEEP DISORDER
  3. ANALGESICS [Concomitant]
     Indication: ORAL DISORDER
  4. SYNTHROID [Concomitant]
     Indication: THYROID DISORDER
  5. PREVACID [Concomitant]
     Indication: HIATUS HERNIA
  6. VYTORIN [Concomitant]
     Indication: BLOOD CHOLESTEROL ABNORMAL

REACTIONS (4)
  - DECREASED APPETITE [None]
  - DYSGEUSIA [None]
  - INAPPROPRIATE SCHEDULE OF DRUG ADMINISTRATION [None]
  - NAUSEA [None]
